FAERS Safety Report 22632544 (Version 1)
Quarter: 2023Q2

REPORT INFORMATION
  Report Type: Spontaneous
  Country: US (occurrence: US)
  Receive Date: 20230623
  Receipt Date: 20230623
  Transmission Date: 20230721
  Serious: No
  Sender: FDA-Public Use
  Company Number: US-GLENMARK PHARMACEUTICALS-2022GMK075662

PATIENT

DRUGS (1)
  1. CALCIPOTRIENE [Suspect]
     Active Substance: CALCIPOTRIENE
     Indication: Psoriasis
     Dosage: UNK
     Route: 061
     Dates: start: 20221001, end: 20221002

REACTIONS (4)
  - Application site pain [Unknown]
  - Application site exfoliation [Unknown]
  - Application site erythema [Unknown]
  - Application site scar [Unknown]

NARRATIVE: CASE EVENT DATE: 20221001
